FAERS Safety Report 7874765-0 (Version None)
Quarter: 2011Q4

REPORT INFORMATION
  Report Type: 
  Country: None (occurrence: None)
  Receive Date: 20111031
  Receipt Date: 20111017
  Transmission Date: 20120403
  Serious: Yes (Other)
  Sender: FDA-Public Use
  Company Number: US-ELI_LILLY_AND_COMPANY-US201110005178

PATIENT
  Sex: Female

DRUGS (3)
  1. CALCIUM [Concomitant]
     Dosage: UNK
  2. HUMALOG [Suspect]
     Indication: DIABETES MELLITUS
     Dosage: UNK UNK, PRN
  3. HUMALOG [Suspect]
     Dosage: UNK, PRN

REACTIONS (7)
  - NEUROPATHY PERIPHERAL [None]
  - DEHYDRATION [None]
  - MALAISE [None]
  - INCORRECT DOSE ADMINISTERED [None]
  - MUSCLE SPASMS [None]
  - BLOOD GLUCOSE INCREASED [None]
  - THYROID DISORDER [None]
